FAERS Safety Report 24210727 (Version 1)
Quarter: 2024Q3

REPORT INFORMATION
  Report Type: Spontaneous
  Country: US (occurrence: None)
  Receive Date: 20240813
  Receipt Date: 20240813
  Transmission Date: 20241016
  Serious: Yes (unspecified)
  Sender: Public
  Company Number: None

PATIENT
  Age: 15 Year
  Sex: Female
  Weight: 60.8 kg

DRUGS (1)
  1. GADOTERATE MEGLUMINE [Suspect]
     Active Substance: GADOTERATE MEGLUMINE
     Dosage: 12.2 ML MILLITRE(S) ONCE INTRAVENOUS
     Route: 042

REACTIONS (2)
  - Eye swelling [None]
  - Dyspnoea [None]

NARRATIVE: CASE EVENT DATE: 20240607
